FAERS Safety Report 7651430-6 (Version None)
Quarter: 2011Q3

REPORT INFORMATION
  Report Type: 
  Country: None (occurrence: None)
  Receive Date: 20110802
  Receipt Date: 20110722
  Transmission Date: 20111222
  Serious: Yes (Hospitalization)
  Sender: FDA-Public Use
  Company Number: PHHY2011IT66676

PATIENT
  Sex: Male
  Weight: 65 kg

DRUGS (1)
  1. CERTICAN [Suspect]
     Indication: IMMUNOSUPPRESSION
     Dosage: 2 MG/DAY
     Route: 048
     Dates: start: 20060621

REACTIONS (2)
  - ANAEMIA [None]
  - GASTRITIS [None]
